FAERS Safety Report 15641120 (Version 2)
Quarter: 2018Q4

REPORT INFORMATION
  Report Type: Spontaneous
  Country: JP (occurrence: JP)
  Receive Date: 20181120
  Receipt Date: 20181210
  Transmission Date: 20190205
  Serious: Yes (Hospitalization, Disabling, Other)
  Sender: FDA-Public Use
  Company Number: JP-SUCAMPO PHARMACEUTICALS INC.-SPI201801068

PATIENT
  Age: 70 Year
  Sex: Male

DRUGS (16)
  1. LOQOA [Concomitant]
     Indication: MUSCULOSKELETAL PAIN
     Dosage: 1 DF, QD
     Dates: end: 20181030
  2. LINZESS [Suspect]
     Active Substance: LINACLOTIDE
     Indication: CONSTIPATION
     Dosage: 0.5 MG, QD
     Route: 048
     Dates: start: 20180425, end: 20181030
  3. RABEPRAZOLE                        /01417202/ [Concomitant]
     Active Substance: RABEPRAZOLE SODIUM
     Indication: PROPHYLAXIS AGAINST GASTROINTESTINAL ULCER
     Dosage: 10 MG, QD
     Route: 048
     Dates: start: 201306, end: 20181030
  4. POLYFUL [Concomitant]
     Active Substance: CALCIUM POLYCARBOPHIL
     Indication: CONSTIPATION
     Dosage: 1.2 G, TID
     Route: 048
     Dates: start: 201305, end: 20181030
  5. METHYCOBAL [Concomitant]
     Active Substance: METHYLCOBALAMIN
     Indication: NEUROPATHY PERIPHERAL
     Dosage: 0.5 MG, TID
     Route: 048
     Dates: end: 20181030
  6. AMITIZA [Suspect]
     Active Substance: LUBIPROSTONE
     Indication: CONSTIPATION
     Dosage: 24 MCG, BID
     Route: 048
     Dates: start: 20180822, end: 20181023
  7. SENNA [Concomitant]
     Active Substance: SENNA LEAF\SENNOSIDES\SENNOSIDES A AND B
     Indication: CONSTIPATION
     Dosage: 1 G, QID
     Route: 048
     Dates: end: 20181030
  8. LIXIANA [Concomitant]
     Active Substance: EDOXABAN TOSYLATE
     Indication: THROMBOSIS PROPHYLAXIS
     Dosage: 30 MG, QD
     Route: 048
     Dates: end: 20181017
  9. MASHININGAN [Concomitant]
     Active Substance: HERBALS
     Indication: CONSTIPATION
     Dosage: 2.5 G, TID
     Route: 048
     Dates: end: 20181030
  10. VEMAS [Concomitant]
     Active Substance: CASANTHRANOL\DOCUSATE SODIUM
     Indication: CONSTIPATION
     Dosage: 2 DF, TID
     Route: 048
     Dates: start: 20181002, end: 20181030
  11. NEW LECICARBOM [Concomitant]
     Indication: CONSTIPATION
     Dosage: 1 DF, PRN
     Route: 054
     Dates: start: 20180925
  12. GASMOTIN [Concomitant]
     Active Substance: MOSAPRIDE CITRATE
     Indication: CONSTIPATION
     Dosage: 5 MG, BID
     Route: 048
     Dates: start: 201305, end: 20181030
  13. GOOFICE [Suspect]
     Active Substance: ELOBIXIBAT
     Indication: CONSTIPATION
     Dosage: 10 MG, QD
     Route: 048
     Dates: start: 20180606, end: 20180905
  14. GOOFICE [Suspect]
     Active Substance: ELOBIXIBAT
     Dosage: 15 MG, QD
     Route: 048
     Dates: start: 20181014, end: 20181030
  15. PARIET [Concomitant]
     Active Substance: RABEPRAZOLE SODIUM
  16. SENNOSIDE                          /00571901/ [Concomitant]
     Active Substance: SENNOSIDES A AND B
     Indication: CONSTIPATION
     Dosage: 2 DF, PRN
     Route: 048
     Dates: start: 20180925

REACTIONS (1)
  - Tubulointerstitial nephritis [Recovering/Resolving]

NARRATIVE: CASE EVENT DATE: 20180925
